FAERS Safety Report 25996599 (Version 1)
Quarter: 2025Q4

REPORT INFORMATION
  Report Type: Spontaneous
  Country: EU (occurrence: EU)
  Receive Date: 20251104
  Receipt Date: 20251104
  Transmission Date: 20260117
  Serious: Yes (Death, Other)
  Sender: BRACCO
  Company Number: None

PATIENT
  Age: 73 Year
  Sex: Male

DRUGS (2)
  1. IOMERON [Suspect]
     Active Substance: IOMEPROL
     Indication: Scan with contrast
     Dosage: 150 ML, SINGLE
     Route: 042
     Dates: start: 20251002, end: 20251002
  2. DOCETAXEL [Concomitant]
     Active Substance: DOCETAXEL
     Indication: Lung cancer metastatic
     Dosage: 113 ML IN 3 WEEKS, STRENGTH: UNKNOWN.
     Dates: start: 20250828

REACTIONS (2)
  - Cardiac arrest [Fatal]
  - Malaise [Not Recovered/Not Resolved]

NARRATIVE: CASE EVENT DATE: 20251002
